FAERS Safety Report 20638227 (Version 13)
Quarter: 2022Q3

REPORT INFORMATION
  Report Type: Report from Study
  Country: US (occurrence: US)
  Receive Date: 20220325
  Receipt Date: 20220714
  Transmission Date: 20221027
  Serious: Yes (Other)
  Sender: FDA-Public Use
  Company Number: US-PFIZER INC-202101176882

PATIENT
  Age: 71 Year
  Sex: Female
  Weight: 38.549 kg

DRUGS (6)
  1. LYRICA [Suspect]
     Active Substance: PREGABALIN
     Indication: Peripheral nerve injury
     Dosage: 50 MG, 3X/DAY (1 CAPSULE TID 30 DAYS)
     Route: 048
  2. LYRICA [Suspect]
     Active Substance: PREGABALIN
     Indication: Vulvovaginal pain
     Dosage: 25 MG, 3X/DAY (1 CAPSULE TID 30 DAYS)
     Route: 048
  3. LYRICA [Suspect]
     Active Substance: PREGABALIN
     Indication: Pelvic pain
     Dosage: 75 MG, 3X/DAY (1 CAPSULE TID 30 DAYS)
     Route: 048
  4. LYRICA [Suspect]
     Active Substance: PREGABALIN
     Indication: Vulvovaginal pain
  5. LYRICA [Suspect]
     Active Substance: PREGABALIN
     Indication: Nerve injury
  6. CLONAZEPAM [Concomitant]
     Active Substance: CLONAZEPAM
     Indication: Anxiety
     Dosage: 1 MG, AS NEEDED

REACTIONS (10)
  - Multiple sclerosis [Unknown]
  - Diverticulitis [Unknown]
  - Drug ineffective [Not Recovered/Not Resolved]
  - Arthritis [Unknown]
  - Memory impairment [Unknown]
  - Blood cholesterol increased [Not Recovered/Not Resolved]
  - Somnolence [Unknown]
  - Irritable bowel syndrome [Unknown]
  - Constipation [Unknown]
  - Stress [Unknown]
